FAERS Safety Report 9591686 (Version 2)
Quarter: 2013Q4

REPORT INFORMATION
  Report Type: Spontaneous
  Country: US (occurrence: US)
  Receive Date: 20131004
  Receipt Date: 20131004
  Transmission Date: 20140711
  Serious: No
  Sender: FDA-Public Use
  Company Number: US-AMGEN-USASP2012079295

PATIENT
  Age: 60 Year
  Sex: Female
  Weight: 49.89 kg

DRUGS (5)
  1. ENBREL [Suspect]
     Indication: RHEUMATOID ARTHRITIS
     Dosage: 50 MG, QWK
     Route: 058
     Dates: start: 20121126, end: 20121126
  2. TRAZODONE [Concomitant]
     Indication: INSOMNIA
     Dosage: 50 UNK, QHS
     Route: 048
  3. PLAQUENIL                          /00072602/ [Concomitant]
     Indication: RHEUMATOID ARTHRITIS
     Dosage: 200 UNK, QD
     Route: 048
     Dates: start: 20120726
  4. AZULFIDINE [Concomitant]
     Indication: RHEUMATOID ARTHRITIS
     Dosage: 500 UNK, QD
     Route: 048
     Dates: start: 20121008
  5. VOLTAREN                           /00372301/ [Concomitant]
     Indication: RHEUMATOID ARTHRITIS
     Dosage: 1 %, PRN
     Route: 061
     Dates: start: 20121101

REACTIONS (1)
  - Mouth ulceration [Recovered/Resolved]
